FAERS Safety Report 19560438 (Version 1)
Quarter: 2021Q3

REPORT INFORMATION
  Report Type: Spontaneous
  Country: US (occurrence: US)
  Receive Date: 20210715
  Receipt Date: 20210715
  Transmission Date: 20211014
  Serious: Yes (Life-Threatening, Disabling, Other)
  Sender: FDA-Public Use
  Company Number: None

PATIENT
  Age: 30 Year
  Sex: Female
  Weight: 68.4 kg

DRUGS (2)
  1. MULTIVITAMIN [Concomitant]
     Active Substance: VITAMINS
  2. NEUTROGENA ULTRA SHEER FACE MIST SUNSCREEN BROAD SPECTRUM SPF 55 [Suspect]
     Active Substance: AVOBENZONE\HOMOSALATE\OCTISALATE\OCTOCRYLENE
     Indication: PROPHYLAXIS AGAINST SOLAR RADIATION
     Dosage: ?          OTHER STRENGTH:SPF;QUANTITY:3.4 OUNCE(S);?
     Route: 061
     Dates: start: 20200806, end: 20210504

REACTIONS (1)
  - Breast cancer [None]

NARRATIVE: CASE EVENT DATE: 20210511
